FAERS Safety Report 11799843 (Version 1)
Quarter: 2015Q4

REPORT INFORMATION
  Report Type: Spontaneous
  Country: US (occurrence: US)
  Receive Date: 20151203
  Receipt Date: 20151203
  Transmission Date: 20160305
  Serious: No
  Sender: FDA-Public Use
  Company Number: ALCN2010US003514

PATIENT
  Sex: Female

DRUGS (5)
  1. VIGAMOX [Suspect]
     Active Substance: MOXIFLOXACIN HYDROCHLORIDE
     Indication: CATARACT OPERATION
     Route: 047
  2. VITAMINS [Concomitant]
     Active Substance: VITAMINS
  3. SYNTHROID [Concomitant]
     Active Substance: LEVOTHYROXINE SODIUM
     Indication: HYPOTHYROIDISM
     Dosage: 0.50MG QD
  4. NEVANAC [Suspect]
     Active Substance: NEPAFENAC
     Indication: CATARACT OPERATION
     Route: 047
     Dates: end: 20100630
  5. OMNIPRED [Suspect]
     Active Substance: PREDNISOLONE ACETATE
     Indication: CATARACT OPERATION
     Route: 047
     Dates: end: 20100630

REACTIONS (4)
  - Eye pain [Recovering/Resolving]
  - Swelling face [Recovering/Resolving]
  - Facial pain [Recovering/Resolving]
  - Vision blurred [Recovering/Resolving]
